FAERS Safety Report 7707542-1 (Version None)
Quarter: 2011Q3

REPORT INFORMATION
  Report Type: 
  Country: None (occurrence: None)
  Receive Date: 20110824
  Receipt Date: 20110812
  Transmission Date: 20111222
  Serious: Yes (Hospitalization, Other)
  Sender: FDA-Public Use
  Company Number: US-ELI_LILLY_AND_COMPANY-US201108004828

PATIENT
  Age: 74 Year
  Sex: Female

DRUGS (3)
  1. VANCOMYCIN HCL [Concomitant]
  2. CEFEPIME [Concomitant]
  3. GEMCITABINE HYDROCHLORIDE [Suspect]
     Indication: PANCREATIC CARCINOMA
     Dosage: UNK
     Route: 042

REACTIONS (4)
  - SYSTEMIC INFLAMMATORY RESPONSE SYNDROME [None]
  - CELLULITIS [None]
  - ENCEPHALOPATHY [None]
  - PULMONARY EMBOLISM [None]
